FAERS Safety Report 9438226 (Version 1)
Quarter: 2013Q3

REPORT INFORMATION
  Report Type: Spontaneous
  Country: US (occurrence: US)
  Receive Date: 20130802
  Receipt Date: 20130802
  Transmission Date: 20140515
  Serious: No
  Sender: FDA-Public Use
  Company Number: US-BRISTOL-MYERS SQUIBB COMPANY-17387531

PATIENT
  Age: 68 Year
  Sex: Female

DRUGS (2)
  1. COUMADIN [Suspect]
     Indication: PULMONARY EMBOLISM
     Dosage: 10MG: 10DEC12-11DEC12?REDUCED: 7.5MG DAILY?12DEC12:10MG
     Route: 048
     Dates: start: 2012
  2. ENOXAPARIN SODIUM [Suspect]
     Indication: PULMONARY EMBOLISM
     Route: 048
     Dates: start: 20121210

REACTIONS (2)
  - Feeling abnormal [Unknown]
  - Therapeutic response decreased [Unknown]
